FAERS Safety Report 7811344-5 (Version None)
Quarter: 2011Q4

REPORT INFORMATION
  Report Type: 
  Country: None (occurrence: None)
  Receive Date: 20111013
  Receipt Date: 20111003
  Transmission Date: 20120403
  Serious: Yes (Death, Other)
  Sender: FDA-Public Use
  Company Number: US-SANOFI-AVENTIS-2011SA066452

PATIENT
  Age: 52 Year
  Sex: Female

DRUGS (11)
  1. CYCLOPHOSPHAMIDE [Suspect]
     Dates: start: 20101101
  2. SPIRIVA [Concomitant]
  3. EPREX /UNK/ [Concomitant]
  4. OFORTA [Suspect]
     Route: 048
     Dates: end: 20110301
  5. ACYCLOVIR [Concomitant]
  6. OFORTA [Suspect]
     Route: 048
     Dates: start: 20101101
  7. MABTHERA [Suspect]
     Route: 065
     Dates: start: 20110113
  8. OXIS TURBUHALER ^DRACO^ [Concomitant]
  9. MABTHERA [Suspect]
     Route: 065
     Dates: end: 20110415
  10. CYCLOPHOSPHAMIDE [Suspect]
     Dates: end: 20110301
  11. BACTRIM DS [Concomitant]

REACTIONS (8)
  - JC VIRUS INFECTION [None]
  - PYREXIA [None]
  - PROGRESSIVE MULTIFOCAL LEUKOENCEPHALOPATHY [None]
  - HEMIPLEGIA [None]
  - COGNITIVE DISORDER [None]
  - ADVERSE DRUG REACTION [None]
  - DYSARTHRIA [None]
  - HEARING IMPAIRED [None]
